FAERS Safety Report 4980380-9 (Version None)
Quarter: 2006Q2

REPORT INFORMATION
  Report Type: 
  Country: None (occurrence: None)
  Receive Date: 20060421
  Receipt Date: 20060421
  Transmission Date: 20061013
  Serious: Yes (Hospitalization)
  Sender: FDA-Public Use
  Company Number: None

PATIENT
  Age: 21 Year
  Sex: Female
  Weight: 53 kg

DRUGS (2)
  1. HURRICAINE SPRAY   20%      BEUTLICH [Suspect]
     Indication: ENDOSCOPY
     Dosage: 1 SPRAY  ONE TIME   ENDOTRACHEAL
     Route: 007
     Dates: start: 20060325, end: 20060325
  2. HURRICAINE SPRAY   20%      BEUTLICH [Suspect]
     Indication: LOCAL ANAESTHESIA
     Dosage: 1 SPRAY  ONE TIME   ENDOTRACHEAL
     Route: 007
     Dates: start: 20060325, end: 20060325

REACTIONS (1)
  - METHAEMOGLOBINAEMIA [None]
